FAERS Safety Report 16310926 (Version 2)
Quarter: 2019Q4

REPORT INFORMATION
  Report Type: Spontaneous
  Country: CA (occurrence: CA)
  Receive Date: 20190514
  Receipt Date: 20191115
  Transmission Date: 20200122
  Serious: Yes (Other)
  Sender: FDA-Public Use
  Company Number: CA-TEVA-2019-CA-1049164

PATIENT
  Sex: Female

DRUGS (14)
  1. CYMBALTA [Concomitant]
     Active Substance: DULOXETINE HYDROCHLORIDE
     Dosage: FORM OF ADMIN : NOT SPECIFIED
  2. ALENDRONATE SODIUM. [Concomitant]
     Active Substance: ALENDRONATE SODIUM
  3. OXYCODONE [Concomitant]
     Active Substance: OXYCODONE
  4. PANTOLOC [Concomitant]
     Active Substance: PANTOPRAZOLE SODIUM
  5. METHOTREXATE. [Concomitant]
     Active Substance: METHOTREXATE
     Dosage: FORM OF ADMIN : NOT SPECIFIED
  6. LASIX [Concomitant]
     Active Substance: FUROSEMIDE
     Dosage: FORM OF ADMIN : NOT SPECIFIED
  7. FOLIC ACID. [Concomitant]
     Active Substance: FOLIC ACID
     Dosage: FORM OF ADMIN : NOT SPECIFIED
  8. LIPITOR [Concomitant]
     Active Substance: ATORVASTATIN CALCIUM
     Dosage: FORM OF ADMIN : NOT SPECIFIED
  9. ACTEMRA [Suspect]
     Active Substance: TOCILIZUMAB
     Indication: RHEUMATOID ARTHRITIS
     Route: 058
  10. DILAUDID [Concomitant]
     Active Substance: HYDROMORPHONE HYDROCHLORIDE
     Dosage: FORM OF ADMIN : NOT SPECIFIED
  11. XARELTO [Concomitant]
     Active Substance: RIVAROXABAN
  12. FENTANYL CITRATE. [Suspect]
     Active Substance: FENTANYL CITRATE
     Indication: PRODUCT USED FOR UNKNOWN INDICATION
     Route: 065
  13. PREDNISONE. [Suspect]
     Active Substance: PREDNISONE
     Indication: PRODUCT USED FOR UNKNOWN INDICATION
     Route: 065
  14. ALTACE [Concomitant]
     Active Substance: RAMIPRIL

REACTIONS (10)
  - Cellulitis [Not Recovered/Not Resolved]
  - Oedema peripheral [Not Recovered/Not Resolved]
  - Pain in extremity [Not Recovered/Not Resolved]
  - Bursitis [Not Recovered/Not Resolved]
  - Injection site pruritus [Not Recovered/Not Resolved]
  - Oropharyngeal pain [Not Recovered/Not Resolved]
  - Visual impairment [Not Recovered/Not Resolved]
  - Drug ineffective [Not Recovered/Not Resolved]
  - Localised infection [Not Recovered/Not Resolved]
  - Arthralgia [Not Recovered/Not Resolved]
